FAERS Safety Report 5121115-9 (Version None)
Quarter: 2006Q4

REPORT INFORMATION
  Report Type: 
  Country: None (occurrence: None)
  Receive Date: 20061002
  Receipt Date: 20060913
  Transmission Date: 20070319
  Serious: Yes (Other)
  Sender: FDA-Public Use
  Company Number: US200609003349

PATIENT
  Sex: Male

DRUGS (2)
  1. CYMBALTA                  (DULOXETINE HYDROCHLORIDE) CAPSULE [Suspect]
  2. TRAZODONE HCL [Suspect]

REACTIONS (1)
  - NEUROLEPTIC MALIGNANT SYNDROME [None]
